FAERS Safety Report 8068972-4 (Version None)
Quarter: 2012Q1

REPORT INFORMATION
  Report Type: 
  Country: None (occurrence: None)
  Receive Date: 20120118
  Receipt Date: 20120115
  Transmission Date: 20120608
  Serious: Yes (Death, Life-Threatening)
  Sender: FDA-Public Use
  Company Number: 1155924

PATIENT
  Sex: Female
  Weight: 28.123 kg

DRUGS (1)
  1. PROPOFOL [Suspect]
     Indication: INDUCTION OF ANAESTHESIA
     Dosage: 15 MG MILLIGRAM(S); INTRAVENOUS (NOT OTHERWISE SPECIFIED)
     Route: 042
     Dates: start: 20050330, end: 20050330

REACTIONS (5)
  - ANGIOEDEMA [None]
  - CARDIAC ARREST [None]
  - SALIVARY HYPERSECRETION [None]
  - ANAPHYLACTIC REACTION [None]
  - ANOXIA [None]
